FAERS Safety Report 4340838-2 (Version None)
Quarter: 2004Q2

REPORT INFORMATION
  Report Type: 
  Country: None (occurrence: None)
  Receive Date: 20040413
  Receipt Date: 20040331
  Transmission Date: 20050107
  Serious: Yes (Other)
  Sender: FDA-Public Use
  Company Number: 2004021650

PATIENT
  Age: 65 Year
  Sex: Female

DRUGS (10)
  1. DILANTIN KAPSEAL [Suspect]
     Indication: CONVULSION
     Dosage: ORAL
     Route: 048
     Dates: start: 20030801
  2. BACLOFEN [Concomitant]
  3. TIZANIDINE HCL [Concomitant]
  4. AZATHIOPRINE [Concomitant]
  5. LEVOTHYROXINE SODIUM [Concomitant]
  6. FLUOXETINE HCL [Concomitant]
  7. FEXOFENADINE HYDROCHLORIDE [Concomitant]
  8. MORPHINE SULFATE [Concomitant]
  9. MORPHINE SULFATE [Concomitant]
  10. LORAZEPAM [Concomitant]

REACTIONS (9)
  - CONDITION AGGRAVATED [None]
  - CONVULSION [None]
  - DEPRESSED LEVEL OF CONSCIOUSNESS [None]
  - DRUG INEFFECTIVE [None]
  - MULTIPLE SCLEROSIS [None]
  - PARALYSIS [None]
  - PULMONARY CONGESTION [None]
  - SOMNOLENCE [None]
  - WEIGHT DECREASED [None]
